FAERS Safety Report 14003174 (Version 1)
Quarter: 2017Q3

REPORT INFORMATION
  Report Type: Spontaneous
  Country: BR (occurrence: BR)
  Receive Date: 20170922
  Receipt Date: 20170922
  Transmission Date: 20171128
  Serious: Yes (Other)
  Sender: FDA-Public Use
  Company Number: BR-AMGEN-BRASP2017143701

PATIENT
  Age: 46 Year
  Sex: Female

DRUGS (1)
  1. ENBREL [Suspect]
     Active Substance: ETANERCEPT
     Indication: PRODUCT USED FOR UNKNOWN INDICATION
     Dosage: UNK
     Route: 065
     Dates: start: 2014

REACTIONS (6)
  - Pharyngeal inflammation [Unknown]
  - Product storage error [Unknown]
  - Tooth infection [Unknown]
  - Arthralgia [Not Recovered/Not Resolved]
  - Synovial cyst [Unknown]
  - Inflammation [Unknown]

NARRATIVE: CASE EVENT DATE: 201707
